FAERS Safety Report 7740039-1 (Version None)
Quarter: 2011Q3

REPORT INFORMATION
  Report Type: 
  Country: None (occurrence: None)
  Receive Date: 20110906
  Receipt Date: 20110817
  Transmission Date: 20111222
  Serious: Yes (Hospitalization)
  Sender: FDA-Public Use
  Company Number: JP-006159

PATIENT
  Age: 32 Year
  Sex: Female

DRUGS (3)
  1. CLOMIFENE CITRATE (CLOMIFENE CITRATE) [Suspect]
     Indication: OVULATION INDUCTION
  2. HMG /06269502/ (HMG) (NOT SPECIFIED) [Suspect]
     Indication: OVULATION INDUCTION
  3. CHORIONIC GONADOTROPIN [Suspect]
     Indication: OVULATION INDUCTION

REACTIONS (5)
  - BENIGN HYDATIDIFORM MOLE [None]
  - MATERNAL EXPOSURE DURING PREGNANCY [None]
  - METASTASES TO LUNG [None]
  - CHORIOCARCINOMA [None]
  - GENITAL HAEMORRHAGE [None]
